FAERS Safety Report 25620657 (Version 2)
Quarter: 2025Q3

REPORT INFORMATION
  Report Type: Spontaneous
  Country: JP (occurrence: JP)
  Receive Date: 20250730
  Receipt Date: 20250915
  Transmission Date: 20251021
  Serious: Yes (Disabling, Other)
  Sender: AMGEN
  Company Number: JP-DSJP-DS-2025-154709-

PATIENT
  Age: 80 Year
  Sex: Female

DRUGS (3)
  1. DENOSUMAB [Suspect]
     Active Substance: DENOSUMAB
     Indication: Osteoporosis
     Dosage: 60 MG, ONCE EVERY 6 MO
     Route: 058
     Dates: start: 20220518
  2. CALCIUM ASPARTATE [Concomitant]
     Active Substance: CALCIUM ASPARTATE
     Indication: Product used for unknown indication
     Dosage: 400 MG, BID
     Route: 048
     Dates: start: 20220518
  3. HERBALS [Concomitant]
     Active Substance: HERBALS
     Indication: Musculoskeletal stiffness
     Route: 048
     Dates: start: 20220518

REACTIONS (1)
  - Tooth loss [Not Recovered/Not Resolved]

NARRATIVE: CASE EVENT DATE: 20220101
